FAERS Safety Report 8915028 (Version 1)
Quarter: 2012Q4

REPORT INFORMATION
  Report Type: 
  Country: US (occurrence: US)
  Receive Date: 20121116
  Receipt Date: 20121116
  Transmission Date: 20130627
  Serious: Yes (Other)
  Sender: FDA-Public Use
  Company Number: US-GLAXOSMITHKLINE-A1000758A

PATIENT
  Age: 28 Year
  Sex: Female

DRUGS (2)
  1. LAMICTAL XR [Suspect]
     Indication: CONVULSION
     Dosage: 200MG Per day
     Route: 048
  2. ZONISAMIDE [Concomitant]

REACTIONS (5)
  - Convulsion [Recovered/Resolved]
  - Vision blurred [Unknown]
  - Fatigue [Unknown]
  - Malaise [Unknown]
  - Drug administration error [Unknown]
